FAERS Safety Report 20934340 (Version 1)
Quarter: 2022Q2

REPORT INFORMATION
  Report Type: Spontaneous
  Country: US (occurrence: None)
  Receive Date: 20220607
  Receipt Date: 20220607
  Transmission Date: 20220720
  Serious: Yes (Other)
  Sender: FDA-Public Use
  Company Number: None

PATIENT
  Age: 80 Year
  Sex: Female

DRUGS (18)
  1. AMBRISENTAN [Suspect]
     Active Substance: AMBRISENTAN
     Indication: Pulmonary arterial hypertension
     Dosage: FREQUENCY : DAILY;?
     Route: 048
     Dates: start: 20120112
  2. SILDENAFIL [Concomitant]
     Active Substance: SILDENAFIL
  3. tyvaso inhl neb soln [Concomitant]
  4. SPIRONOLACTONE [Concomitant]
     Active Substance: SPIRONOLACTONE
  5. FAMOTIDINE [Concomitant]
     Active Substance: FAMOTIDINE
  6. ALBUTEROL SULFATE [Concomitant]
     Active Substance: ALBUTEROL SULFATE
  7. voltaren top gel [Concomitant]
  8. AMLODIPINE [Concomitant]
     Active Substance: AMLODIPINE BESYLATE
  9. LEVOTHYROXINE [Concomitant]
     Active Substance: LEVOTHYROXINE
  10. COLACE [Concomitant]
     Active Substance: DOCUSATE SODIUM
  11. genteal opht drop [Concomitant]
  12. VITAMINS [Concomitant]
     Active Substance: VITAMINS
  13. Duoneb inhl neb soln [Concomitant]
  14. BUMETANIDE [Concomitant]
     Active Substance: BUMETANIDE
  15. SPIRIVA RESPIMAT [Concomitant]
     Active Substance: TIOTROPIUM BROMIDE
  16. WIXELA INHUB [Concomitant]
     Active Substance: FLUTICASONE PROPIONATE\SALMETEROL XINAFOATE
  17. PRAVASTATIN [Concomitant]
     Active Substance: PRAVASTATIN
  18. ACETAMINOPHEN [Concomitant]
     Active Substance: ACETAMINOPHEN

REACTIONS (4)
  - Chest pain [None]
  - Abdominal pain [None]
  - Urinary tract infection [None]
  - Constipation [None]

NARRATIVE: CASE EVENT DATE: 20220425
